FAERS Safety Report 9070949 (Version 2)
Quarter: 2013Q2

REPORT INFORMATION
  Report Type: Spontaneous
  Country: JP (occurrence: JP)
  Receive Date: 20130129
  Receipt Date: 20130403
  Transmission Date: 20140414
  Serious: Yes (Hospitalization)
  Sender: FDA-Public Use
  Company Number: JP-GLAXOSMITHKLINE-B0854607A

PATIENT
  Age: 85 Year
  Sex: Male

DRUGS (4)
  1. AVOLVE [Suspect]
     Indication: BENIGN PROSTATIC HYPERPLASIA
     Dosage: .5MG PER DAY
     Route: 048
     Dates: start: 20121002, end: 20121013
  2. URIEF [Suspect]
     Indication: BENIGN PROSTATIC HYPERPLASIA
     Dosage: 4MG TWICE PER DAY
     Route: 048
     Dates: start: 20120707, end: 20121013
  3. BLOPRESS [Concomitant]
     Indication: HYPERTENSION
     Dosage: 8MG PER DAY
     Route: 048
  4. UNKNOWN DRUG [Concomitant]
     Indication: CONSTIPATION
     Dosage: 250MG TWICE PER DAY
     Route: 048

REACTIONS (5)
  - Pyelonephritis [Recovered/Resolved]
  - Tremor [Recovered/Resolved]
  - Pyrexia [Recovered/Resolved]
  - White blood cell count increased [Unknown]
  - C-reactive protein increased [Unknown]
